FAERS Safety Report 14853818 (Version 1)
Quarter: 2018Q2

REPORT INFORMATION
  Report Type: Spontaneous
  Country: US (occurrence: US)
  Receive Date: 20180421
  Receipt Date: 20180421
  Transmission Date: 20180711
  Serious: Yes (Other)
  Sender: FDA-Public Use
  Company Number: None

PATIENT
  Age: 29 Year
  Sex: Male
  Weight: 87.3 kg

DRUGS (1)
  1. LYRICA [Suspect]
     Active Substance: PREGABALIN
     Indication: NERVE INJURY
     Dosage: ?          QUANTITY:90 CAPSULE(S);?
     Route: 048
     Dates: start: 20180401, end: 20180401

REACTIONS (6)
  - Memory impairment [None]
  - Nausea [None]
  - Fatigue [None]
  - Weight increased [None]
  - Impaired work ability [None]
  - Dry eye [None]

NARRATIVE: CASE EVENT DATE: 20180405
